FAERS Safety Report 5108026-X (Version None)
Quarter: 2006Q3

REPORT INFORMATION
  Report Type: 
  Country: None (occurrence: None)
  Receive Date: 20060914
  Receipt Date: 20060904
  Transmission Date: 20061208
  Serious: Yes (Other)
  Sender: FDA-Public Use
  Company Number: 2006106483

PATIENT
  Age: 51 Year
  Sex: Female

DRUGS (1)
  1. TAHOR (ATORVASTATIN) [Suspect]
     Indication: HYPERCHOLESTEROLAEMIA
     Dosage: 20 MG (20 MG, 1 IN 1 D)

REACTIONS (5)
  - FOOT FRACTURE [None]
  - LIMB CRUSHING INJURY [None]
  - PATHOLOGICAL FRACTURE [None]
  - STRESS FRACTURE [None]
  - VITAMIN D DECREASED [None]
